FAERS Safety Report 4402795-X (Version None)
Quarter: 2004Q3

REPORT INFORMATION
  Report Type: 
  Country: None (occurrence: None)
  Receive Date: 20040721
  Receipt Date: 20031222
  Transmission Date: 20050211
  Serious: Yes (Hospitalization)
  Sender: FDA-Public Use
  Company Number: US-BRISTOL-MYERS SQUIBB COMPANY-12463493

PATIENT
  Age: 44 Year
  Sex: Male
  Weight: 93 kg

DRUGS (10)
  1. ZERIT [Suspect]
     Indication: HIV INFECTION
     Dosage: REDUCED TO 30 MG DAILY IN DEC-2002
     Route: 048
     Dates: start: 19960101
  2. VIDEX [Suspect]
     Indication: HIV INFECTION
     Dates: start: 20001001, end: 20010201
  3. VIRAMUNE [Concomitant]
  4. VIREAD [Concomitant]
  5. NEURONTIN [Concomitant]
  6. TEMAZEPAM [Concomitant]
  7. CLARITIN [Concomitant]
  8. FLONASE [Concomitant]
  9. GEMFIBROZIL [Concomitant]
  10. KALETRA [Concomitant]

REACTIONS (4)
  - CHROMATURIA [None]
  - LIPODYSTROPHY ACQUIRED [None]
  - NEUROPATHY PERIPHERAL [None]
  - PANCREATITIS [None]
